FAERS Safety Report 9170467 (Version 2)
Quarter: 2013Q2

REPORT INFORMATION
  Report Type: Spontaneous
  Country: US (occurrence: None)
  Receive Date: 20130312
  Receipt Date: 20130416
  Transmission Date: 20140414
  Serious: Yes (Hospitalization)
  Sender: FDA-Public Use
  Company Number: ACO_34697_2013

PATIENT
  Age: 65 Year
  Sex: Female

DRUGS (1)
  1. AMPYRA (DALFAMPRIDINE) TABLET, 10MG [Suspect]
     Indication: GAIT DISTURBANCE
     Dates: start: 20110527

REACTIONS (5)
  - Osteoarthritis [None]
  - Musculoskeletal disorder [None]
  - Cellulitis [None]
  - Gait disturbance [None]
  - Walking aid user [None]
